FAERS Safety Report 10172965 (Version 2)
Quarter: 2014Q2

REPORT INFORMATION
  Report Type: Spontaneous
  Country: US (occurrence: None)
  Receive Date: 20140513
  Receipt Date: 20140521
  Transmission Date: 20141212
  Serious: Yes (Death)
  Sender: FDA-Public Use
  Company Number: ADR-2014-00784

PATIENT
  Age: 78 Year
  Sex: Male

DRUGS (4)
  1. BACLOFEN INTRATHECAL [Suspect]
     Indication: CANCER PAIN
     Dosage: 156.47MCG/DAY
  2. DILAUDID [Suspect]
     Indication: CANCER PAIN
     Dosage: 5.0070MG/DAY
  3. BUPIVACAINE INTRATHECAL [Suspect]
  4. KETAMINE [Suspect]

REACTIONS (2)
  - Bladder cancer [None]
  - Condition aggravated [None]
